FAERS Safety Report 4900246-X (Version None)
Quarter: 2006Q1

REPORT INFORMATION
  Report Type: 
  Country: None (occurrence: None)
  Receive Date: 20060203
  Receipt Date: 20060125
  Transmission Date: 20060701
  Serious: Yes (Other)
  Sender: FDA-Public Use
  Company Number: US-NOVOPROD-250396

PATIENT
  Age: 9 Year
  Sex: Male

DRUGS (1)
  1. NORDITROPIN CARTRIDGES [Suspect]
     Indication: GROWTH HORMONE DEFICIENCY
     Dosage: 1 MG, QD
     Route: 058
     Dates: start: 20050901, end: 20060123

REACTIONS (2)
  - DISEASE RECURRENCE [None]
  - NEOPLASM RECURRENCE [None]
